FAERS Safety Report 6589970-3 (Version None)
Quarter: 2010Q1

REPORT INFORMATION
  Report Type: 
  Country: None (occurrence: None)
  Receive Date: 20100219
  Receipt Date: 20100208
  Transmission Date: 20100710
  Serious: Yes (Hospitalization)
  Sender: FDA-Public Use
  Company Number: PHHY2010DE07801

PATIENT
  Sex: Male
  Weight: 122.5 kg

DRUGS (1)
  1. LEPONEX [Suspect]
     Dosage: 300 MG, UNK
     Route: 048
     Dates: start: 20071220

REACTIONS (1)
  - PSYCHOTIC DISORDER [None]
